FAERS Safety Report 21880823 (Version 4)
Quarter: 2023Q1

REPORT INFORMATION
  Report Type: Spontaneous
  Country: CO (occurrence: CO)
  Receive Date: 20230118
  Receipt Date: 20230224
  Transmission Date: 20230418
  Serious: Yes (Hospitalization, Other)
  Sender: FDA-Public Use
  Company Number: CO-SA-SAC20230112000992

PATIENT

DRUGS (2)
  1. LARONIDASE [Suspect]
     Active Substance: LARONIDASE
     Indication: Mucopolysaccharidosis I
     Dosage: 8.7 MG, Q8D
     Route: 042
     Dates: start: 20140827, end: 20230102
  2. LARONIDASE [Suspect]
     Active Substance: LARONIDASE
     Dosage: 8.7 MG, Q8D
     Route: 042
     Dates: start: 20140827

REACTIONS (13)
  - Seizure [Recovered/Resolved]
  - Throat lesion [Recovering/Resolving]
  - Pharyngitis [Recovering/Resolving]
  - Influenza like illness [Recovered/Resolved]
  - Nasal congestion [Recovered/Resolved]
  - Cough [Recovered/Resolved]
  - Pyrexia [Not Recovered/Not Resolved]
  - Urinary tract infection [Recovered/Resolved]
  - Dysphagia [Recovering/Resolving]
  - Hydrocephalus [Recovering/Resolving]
  - Asthenia [Recovering/Resolving]
  - Nausea [Recovering/Resolving]
  - Inappropriate schedule of product administration [Unknown]

NARRATIVE: CASE EVENT DATE: 20140827
